FAERS Safety Report 4334543-6 (Version None)
Quarter: 2004Q2

REPORT INFORMATION
  Report Type: 
  Country: None (occurrence: None)
  Receive Date: 20040407
  Receipt Date: 20040325
  Transmission Date: 20050107
  Serious: Yes (Life-Threatening)
  Sender: FDA-Public Use
  Company Number: NL-GLAXOSMITHKLINE-B0328230A

PATIENT
  Age: 81 Year
  Sex: Male

DRUGS (10)
  1. AMOXYCILLIN TRIHYDRATE + POTASSIUM CLAVULANATE [Suspect]
     Indication: PNEUMONIA
     Dates: start: 20040206, end: 20040213
  2. FLUTICASONE PROPIONATE [Suspect]
     Indication: CHRONIC OBSTRUCTIVE AIRWAYS DISEASE
     Dosage: 250MCG THREE TIMES PER DAY
     Route: 055
  3. LENDORM [Concomitant]
     Indication: SLEEP DISORDER
     Dosage: .25MG PER DAY
  4. ASPIRIN [Concomitant]
     Indication: ATRIAL FIBRILLATION
     Dosage: 80MG PER DAY
  5. IPRATROPIUM BROMIDE [Concomitant]
     Indication: CHRONIC OBSTRUCTIVE AIRWAYS DISEASE
     Dosage: 20MCG FOUR TIMES PER DAY
  6. FORMOTEROL [Concomitant]
     Indication: CHRONIC OBSTRUCTIVE AIRWAYS DISEASE
     Dosage: 12MCG THREE TIMES PER DAY
  7. ACETYLCYSTEINE [Concomitant]
     Indication: CHRONIC OBSTRUCTIVE AIRWAYS DISEASE
     Dosage: 600MG PER DAY
  8. DILTIAZEM [Concomitant]
     Indication: ATRIAL FIBRILLATION
     Dosage: 180MG PER DAY
  9. GINKO BILOBA [Concomitant]
     Dosage: 40MG PER DAY
  10. BROTIZOLAM [Concomitant]

REACTIONS (4)
  - ALANINE AMINOTRANSFERASE INCREASED [None]
  - GAMMA-GLUTAMYLTRANSFERASE INCREASED [None]
  - HEPATITIS [None]
  - JAUNDICE CHOLESTATIC [None]
